FAERS Safety Report 9111460 (Version 1)
Quarter: 2013Q1

REPORT INFORMATION
  Report Type: Spontaneous
  Country: US (occurrence: US)
  Receive Date: 20130219
  Receipt Date: 20130219
  Transmission Date: 20140127
  Serious: No
  Sender: FDA-Public Use
  Company Number: US-BRISTOL-MYERS SQUIBB COMPANY-16441057

PATIENT
  Age: 52 Year
  Sex: Female
  Weight: 120 kg

DRUGS (11)
  1. ORENCIA [Suspect]
     Dosage: NOV2010-JAN2011,IV?FORM FEB2012,SC
     Route: 042
     Dates: start: 201011
  2. CELEBREX [Concomitant]
  3. ATENOLOL [Concomitant]
  4. COZAAR [Concomitant]
  5. AMARYL [Concomitant]
  6. METFORMIN [Concomitant]
     Dosage: METFORMIN XL
  7. LOVAZA [Concomitant]
  8. LYRICA [Concomitant]
  9. BABY ASPIRIN [Concomitant]
  10. MULTIVITAMIN [Concomitant]
  11. CHONDROITIN SULFATE + GLUCOSAMINE [Concomitant]

REACTIONS (2)
  - Arthralgia [Not Recovered/Not Resolved]
  - Incorrect storage of drug [Unknown]
